FAERS Safety Report 4754512-1 (Version None)
Quarter: 2005Q3

REPORT INFORMATION
  Report Type: 
  Country: None (occurrence: None)
  Receive Date: 20050829
  Receipt Date: 20041208
  Transmission Date: 20060218
  Serious: Yes (Hospitalization, Other)
  Sender: FDA-Public Use
  Company Number: US-GLAXOSMITHKLINE-A0536655A

PATIENT
  Age: 75 Year

DRUGS (1)
  1. ZOVIRAX [Suspect]
     Indication: HERPES ZOSTER
     Route: 042

REACTIONS (1)
  - RENAL FAILURE [None]
